FAERS Safety Report 7112754-4 (Version None)
Quarter: 2010Q4

REPORT INFORMATION
  Report Type: 
  Country: None (occurrence: None)
  Receive Date: 20101119
  Receipt Date: 20101112
  Transmission Date: 20110411
  Serious: Yes (Hospitalization, Disabling)
  Sender: FDA-Public Use
  Company Number: FR-BRISTOL-MYERS SQUIBB COMPANY-15384902

PATIENT
  Age: 1 Year
  Sex: Male

DRUGS (6)
  1. AMIKIN [Suspect]
     Indication: PYREXIA
     Dates: start: 20050818, end: 20050822
  2. EFFERALGAN [Suspect]
     Indication: PYREXIA
     Dates: start: 20050801
  3. ADVIL [Suspect]
     Dates: start: 20050818, end: 20050801
  4. CLAFORAN [Suspect]
     Dosage: STOPPED ON 31AUG2005 AND RESTARTED ON 08SEP05 AGAIN STOPPED ON 16SEP05
     Dates: start: 20050818
  5. VANCOMYCIN [Suspect]
     Dosage: STOPPED IN AUG05 AND RESTARTED ON 20SEP05
     Dates: start: 20050819
  6. NUREFLEX [Suspect]
     Indication: PYREXIA
     Dates: start: 20050801

REACTIONS (3)
  - CONVULSION [None]
  - RENAL FAILURE ACUTE [None]
  - TUBULOINTERSTITIAL NEPHRITIS [None]
